FAERS Safety Report 12930239 (Version 1)
Quarter: 2016Q4

REPORT INFORMATION
  Report Type: Spontaneous
  Country: US (occurrence: US)
  Receive Date: 20161110
  Receipt Date: 20161110
  Transmission Date: 20170207
  Serious: No
  Sender: FDA-Public Use
  Company Number: None

PATIENT
  Age: 69 Year
  Sex: Male

DRUGS (1)
  1. TOBRAMYCIN 300MG/5ML NOVARTIS [Suspect]
     Active Substance: TOBRAMYCIN
     Indication: SEPSIS
     Route: 055
     Dates: start: 20160314

REACTIONS (1)
  - Hospitalisation [None]

NARRATIVE: CASE EVENT DATE: 20161104
